FAERS Safety Report 7703678 (Version 2)
Quarter: 2013Q4

REPORT INFORMATION
  Report Type: Spontaneous
  Country: CN (occurrence: CN)
  Receive Date: 20101210
  Receipt Date: 20131212
  Transmission Date: 20140711
  Serious: Yes (Hospitalization, Other)
  Sender: FDA-Public Use
  Company Number: CN-PFIZER INC-2010165385

PATIENT
  Age: 18 Year
  Sex: Female
  Weight: 46 kg

DRUGS (8)
  1. VORICONAZOLE [Suspect]
     Indication: FUNGAL INFECTION
     Dosage: 200 MG, Q12H
     Route: 048
     Dates: start: 201006, end: 201007
  2. VORICONAZOLE [Interacting]
     Dosage: 200 MG, Q12H
     Route: 048
     Dates: start: 201007
  3. CICLOSPORIN [Interacting]
     Indication: PROPHYLAXIS AGAINST TRANSPLANT REJECTION
     Dosage: 100 MG, Q12H
     Route: 048
     Dates: start: 201004, end: 201007
  4. CICLOSPORIN [Interacting]
     Dosage: 75 MG, Q12H
     Route: 048
     Dates: start: 201007
  5. METHYLPREDNISOLONE [Concomitant]
     Dosage: 8 MG, Q12H
     Route: 048
     Dates: start: 201004
  6. CEFACLOR [Concomitant]
     Dosage: UNK
     Dates: start: 201006, end: 201006
  7. CITICOLINE [Concomitant]
     Dosage: 0.75 G, UNK
     Route: 041
     Dates: start: 20100704
  8. MYCOPHENOLATE MOFETIL [Concomitant]
     Dosage: 1 G, Q12H
     Route: 048
     Dates: start: 201004

REACTIONS (7)
  - Drug interaction [Recovered/Resolved]
  - Leukoencephalopathy [Recovering/Resolving]
  - Epilepsy [Recovered/Resolved]
  - Headache [Recovered/Resolved]
  - Dizziness [Recovered/Resolved]
  - Vision blurred [Recovered/Resolved]
  - Immunosuppressant drug level increased [Recovered/Resolved]
